FAERS Safety Report 15402400 (Version 1)
Quarter: 2018Q3

REPORT INFORMATION
  Report Type: Spontaneous
  Country: FR (occurrence: FR)
  Receive Date: 20180919
  Receipt Date: 20180919
  Transmission Date: 20181010
  Serious: Yes (Hospitalization)
  Sender: FDA-Public Use
  Company Number: FR-PFIZER INC-2018371924

PATIENT
  Age: 44 Year
  Sex: Female
  Weight: 59.7 kg

DRUGS (15)
  1. ADVAGRAF [Concomitant]
     Active Substance: TACROLIMUS
  2. KESTIN [Concomitant]
     Active Substance: EBASTINE
  3. CACIT VITAMINE D3 [Concomitant]
     Active Substance: CALCIUM CARBONATE\CHOLECALCIFEROL
  4. TIORFAN [Concomitant]
     Active Substance: RACECADOTRIL
  5. L THYROXIN HENNING [Concomitant]
     Active Substance: LEVOTHYROXINE SODIUM
  6. IMUREL [AZATHIOPRINE] [Concomitant]
  7. CIPROFLOXACIN. [Concomitant]
     Active Substance: CIPROFLOXACIN
     Indication: OSTEITIS
     Dates: start: 20180731, end: 20180816
  8. GUTRON [Concomitant]
     Active Substance: MIDODRINE
  9. MOTILIUM [DOMPERIDONE] [Concomitant]
  10. ARANESP [Concomitant]
     Active Substance: DARBEPOETIN ALFA
  11. KARDEGIC [Concomitant]
     Active Substance: ASPIRIN DL-LYSINE
  12. SODIUM BICARBONATE. [Concomitant]
     Active Substance: SODIUM BICARBONATE
  13. LUTERAN [Concomitant]
     Active Substance: CHLORMADINONE ACETATE
  14. ZYVOXID [Suspect]
     Active Substance: LINEZOLID
     Indication: OSTEITIS
     Dosage: 1 DF, 1X/DAY
     Route: 048
     Dates: start: 201803, end: 20180426
  15. OESCLIM [Concomitant]
     Active Substance: ESTRADIOL

REACTIONS (5)
  - Malaise [Recovered/Resolved]
  - Diarrhoea [Recovered/Resolved]
  - Acute kidney injury [Recovered/Resolved]
  - Condition aggravated [Recovered/Resolved]
  - Thrombocytopenia [Recovered/Resolved]

NARRATIVE: CASE EVENT DATE: 201803
